FAERS Safety Report 5838251-1 (Version None)
Quarter: 2008Q3

REPORT INFORMATION
  Report Type: 
  Country: None (occurrence: None)
  Receive Date: 20080808
  Receipt Date: 20080801
  Transmission Date: 20090109
  Serious: Yes (Death, Hospitalization)
  Sender: FDA-Public Use
  Company Number: US-AVENTIS-200815258GDDC

PATIENT
  Age: 72 Year
  Sex: Male
  Weight: 104.55 kg

DRUGS (9)
  1. TAXOTERE [Suspect]
     Indication: PROSTATE CANCER
     Route: 042
     Dates: start: 20080331, end: 20080331
  2. DEXAMETHASONE [Suspect]
     Indication: PREMEDICATION
     Dates: start: 20071029, end: 20080331
  3. PREDNISONE [Suspect]
     Indication: PROSTATE CANCER
     Route: 048
     Dates: start: 20071029, end: 20080420
  4. CODE UNBROKEN [Suspect]
     Indication: PROSTATE CANCER
     Route: 048
     Dates: start: 20071029, end: 20080420
  5. LISINOPRIL [Concomitant]
     Indication: HYPERTENSION
  6. HYDROCHLOROTHIAZIDE [Concomitant]
     Indication: HYPERTENSION
  7. CLONIDINE [Concomitant]
     Indication: HYPERTENSION
  8. OXYCODONE HCL [Concomitant]
  9. LANOXIN [Concomitant]
     Indication: ATRIAL FIBRILLATION

REACTIONS (5)
  - ACUTE RESPIRATORY DISTRESS SYNDROME [None]
  - CARDIO-RESPIRATORY ARREST [None]
  - CEREBRAL ISCHAEMIA [None]
  - PROSTATE CANCER METASTATIC [None]
  - VENTRICULAR FIBRILLATION [None]
